FAERS Safety Report 9573782 (Version 1)
Quarter: 2013Q4

REPORT INFORMATION
  Report Type: Spontaneous
  Country: US (occurrence: US)
  Receive Date: 20131001
  Receipt Date: 20131001
  Transmission Date: 20140711
  Serious: No
  Sender: FDA-Public Use
  Company Number: US-PURDUE-USA-2012-0083456

PATIENT
  Age: 52 Year
  Sex: Female
  Weight: 53.06 kg

DRUGS (2)
  1. BUTRANS [Suspect]
     Indication: INTERVERTEBRAL DISC PROTRUSION
     Dosage: 10 MCG/HR, DAILY
     Route: 062
     Dates: start: 20110610, end: 20111130
  2. TYLENOL                            /00020001/ [Concomitant]
     Indication: PAIN

REACTIONS (4)
  - Rash [Unknown]
  - Application site erythema [Unknown]
  - Headache [Unknown]
  - Wrong technique in drug usage process [Unknown]
